FAERS Safety Report 4980522-5 (Version None)
Quarter: 2006Q2

REPORT INFORMATION
  Report Type: 
  Country: None (occurrence: None)
  Receive Date: 20060424
  Receipt Date: 20060404
  Transmission Date: 20061013
  Serious: Yes (Death)
  Sender: FDA-Public Use
  Company Number: GB-ROCHE-443295

PATIENT
  Age: 45 Year
  Sex: Male
  Weight: 86.9 kg

DRUGS (2)
  1. XELODA [Suspect]
     Route: 048
     Dates: start: 20060207, end: 20060221
  2. XELODA [Suspect]
     Route: 048
     Dates: start: 20060228, end: 20060326

REACTIONS (2)
  - MYOCARDIAL INFARCTION [None]
  - PULMONARY OEDEMA [None]
